FAERS Safety Report 11832058 (Version 1)
Quarter: 2015Q4

REPORT INFORMATION
  Report Type: Spontaneous
  Country: US (occurrence: US)
  Receive Date: 20151214
  Receipt Date: 20151214
  Transmission Date: 20160305
  Serious: No
  Sender: FDA-Public Use
  Company Number: US-BAYER-2015-488421

PATIENT
  Age: 55 Year
  Sex: Male
  Weight: 88.44 kg

DRUGS (1)
  1. ALEVE [Suspect]
     Active Substance: NAPROXEN SODIUM
     Indication: BACK PAIN
     Dosage: 2 DF, QD
     Route: 048

REACTIONS (2)
  - Abdominal pain upper [Recovered/Resolved]
  - Product use issue [None]

NARRATIVE: CASE EVENT DATE: 201511
